FAERS Safety Report 14675368 (Version 1)
Quarter: 2018Q1

REPORT INFORMATION
  Report Type: Spontaneous
  Country: PL (occurrence: PL)
  Receive Date: 20180323
  Receipt Date: 20180323
  Transmission Date: 20180509
  Serious: Yes (Death)
  Sender: FDA-Public Use
  Company Number: PL-NOVAST LABORATORIES, LTD-PL-2018NOV000146

PATIENT
  Age: 57 Year
  Sex: Female

DRUGS (3)
  1. HEPARIN [Suspect]
     Active Substance: HEPARIN SODIUM
     Indication: CORONARY ARTERY OCCLUSION
     Dosage: 5000 IU, UNK
     Route: 042
  2. CLOPIDOGREL [Suspect]
     Active Substance: CLOPIDOGREL BISULFATE
     Indication: CORONARY ARTERY OCCLUSION
     Dosage: 600 MG, UNK
  3. CARISOPRODOL\ASPIRIN [Suspect]
     Active Substance: ASPIRIN\CARISOPRODOL
     Indication: CORONARY ARTERY OCCLUSION
     Dosage: 300 MG, UNK

REACTIONS (1)
  - Haemorrhage intracranial [Fatal]
